FAERS Safety Report 24339971 (Version 1)
Quarter: 2024Q3

REPORT INFORMATION
  Report Type: Spontaneous
  Country: US (occurrence: US)
  Receive Date: 20240919
  Receipt Date: 20240919
  Transmission Date: 20241016
  Serious: No
  Sender: TEVA
  Company Number: US-TEVA-VS-3242815

PATIENT
  Sex: Female

DRUGS (3)
  1. METHOTREXATE [Suspect]
     Active Substance: METHOTREXATE
     Indication: Rheumatoid arthritis
     Dosage: 1 TABLET TWICE A DAY FOR ONE WEEK
     Route: 065
     Dates: start: 20240819, end: 20240825
  2. METHOTREXATE [Suspect]
     Active Substance: METHOTREXATE
     Indication: Rheumatoid arthritis
     Dosage: INCREASED THIS TO 2 TABLETS TWICE A DAY
     Route: 065
     Dates: start: 20240826, end: 20240905
  3. SULFASALAZINE [Suspect]
     Active Substance: SULFASALAZINE

REACTIONS (6)
  - Pain in extremity [Not Recovered/Not Resolved]
  - Overdose [Unknown]
  - Inappropriate schedule of product administration [Unknown]
  - Arthralgia [Not Recovered/Not Resolved]
  - Product use issue [Unknown]
  - Product label issue [Unknown]

NARRATIVE: CASE EVENT DATE: 20240819
